FAERS Safety Report 12688854 (Version 3)
Quarter: 2017Q1

REPORT INFORMATION
  Report Type: Report from Study
  Country: US (occurrence: US)
  Receive Date: 20160825
  Receipt Date: 20170208
  Transmission Date: 20170428
  Serious: No
  Sender: FDA-Public Use
  Company Number: US-ALEXION-A201606131

PATIENT
  Sex: Male

DRUGS (1)
  1. STRENSIQ [Suspect]
     Active Substance: ASFOTASE ALFA
     Indication: HYPOPHOSPHATASIA
     Dosage: UNK
     Route: 058

REACTIONS (3)
  - Mood swings [Unknown]
  - Aggression [Not Recovered/Not Resolved]
  - Anxiety [Not Recovered/Not Resolved]
